FAERS Safety Report 18570853 (Version 1)
Quarter: 2020Q4

REPORT INFORMATION
  Report Type: Spontaneous
  Country: US (occurrence: US)
  Receive Date: 20201202
  Receipt Date: 20201202
  Transmission Date: 20210114
  Serious: No
  Sender: FDA-Public Use
  Company Number: US-ROCHE-2672028

PATIENT
  Sex: Male

DRUGS (2)
  1. EVRYSDI [Suspect]
     Active Substance: RISDIPLAM
     Indication: SPINAL MUSCULAR ATROPHY
     Dosage: ONGOING:YES
     Route: 048
     Dates: start: 20200822
  2. EVRYSDI [Suspect]
     Active Substance: RISDIPLAM
     Indication: SPINAL MUSCULAR ATROPHY
     Dosage: THERAPY START DATE: 14-AUG-2020?DOSE:ADULT DOSE; ONGOING:YES
     Route: 048
     Dates: start: 20200814

REACTIONS (1)
  - Acne [Not Recovered/Not Resolved]
